FAERS Safety Report 6631756-5 (Version None)
Quarter: 2010Q1

REPORT INFORMATION
  Report Type: 
  Country: None (occurrence: None)
  Receive Date: 20100312
  Receipt Date: 20100305
  Transmission Date: 20100710
  Serious: Yes (Hospitalization, Other)
  Sender: FDA-Public Use
  Company Number: US-SANOFI-AVENTIS-2010SA013298

PATIENT
  Age: 71 Year
  Sex: Female

DRUGS (2)
  1. GLYBURIDE [Suspect]
     Dosage: 1 TABLET TWICE DAILY
     Route: 065
  2. METFORMIN [Concomitant]
     Dosage: 1 TABLET DAILY

REACTIONS (1)
  - MYOCARDIAL INFARCTION [None]
